FAERS Safety Report 9676875 (Version 1)
Quarter: 2013Q4

REPORT INFORMATION
  Report Type: Report from Study
  Country: BR (occurrence: BR)
  Receive Date: 20131107
  Receipt Date: 20131107
  Transmission Date: 20140711
  Serious: Yes (Hospitalization)
  Sender: FDA-Public Use
  Company Number: BR-ROCHE-1298772

PATIENT
  Sex: Male
  Weight: 86 kg

DRUGS (4)
  1. ACTEMRA [Suspect]
     Indication: RHEUMATOID ARTHRITIS
     Dosage: MOST RECENT DOSE PRIOR TO SAE: 01/AUG/2012
     Route: 065
     Dates: start: 20090724
  2. ATENOLOL [Concomitant]
  3. LOSARTAN [Concomitant]
  4. DICLOFENAC SODIUM [Concomitant]

REACTIONS (1)
  - Arthropathy [Unknown]
